FAERS Safety Report 5724480-4 (Version None)
Quarter: 2008Q2

REPORT INFORMATION
  Report Type: 
  Country: None (occurrence: None)
  Receive Date: 20080429
  Receipt Date: 20080414
  Transmission Date: 20081010
  Serious: Yes (Death)
  Sender: FDA-Public Use
  Company Number: 2008022121

PATIENT

DRUGS (1)
  1. FRAGMIN [Suspect]
     Dosage: PLACENTAL
     Dates: end: 20080216

REACTIONS (3)
  - INTRA-UTERINE DEATH [None]
  - MATERNAL DRUGS AFFECTING FOETUS [None]
  - SHOCK [None]
